FAERS Safety Report 15245452 (Version 1)
Quarter: 2018Q3

REPORT INFORMATION
  Report Type: Spontaneous
  Country: US (occurrence: US)
  Receive Date: 20180713
  Receipt Date: 20180713
  Transmission Date: 20181010
  Serious: No
  Sender: FDA-Public Use
  Company Number: None

PATIENT
  Age: 43 Year
  Sex: Female
  Weight: 67.5 kg

DRUGS (1)
  1. VALSARTAN AND HYDROCHLOROTHIAZIDE USP [Suspect]
     Active Substance: HYDROCHLOROTHIAZIDE\VALSARTAN
     Indication: HYPERTENSION
     Dosage: ?          QUANTITY:1 TABLET(S);?
     Route: 048
     Dates: start: 20180115

REACTIONS (4)
  - Gastrointestinal pain [None]
  - Abdominal distension [None]
  - Hepatic steatosis [None]
  - Hepatic enzyme increased [None]

NARRATIVE: CASE EVENT DATE: 20180227
